FAERS Safety Report 6961450-2 (Version None)
Quarter: 2010Q3

REPORT INFORMATION
  Report Type: 
  Country: None (occurrence: None)
  Receive Date: 20100901
  Receipt Date: 20100825
  Transmission Date: 20110219
  Serious: Yes (Other)
  Sender: FDA-Public Use
  Company Number: US-BAYER-201029483NA

PATIENT
  Age: 42 Year
  Sex: Female
  Weight: 83 kg

DRUGS (4)
  1. YASMIN [Suspect]
     Indication: CONTRACEPTION
     Route: 048
     Dates: start: 20070423, end: 20100426
  2. PAXIL CR [Concomitant]
     Route: 065
     Dates: start: 20080401, end: 20091201
  3. SYNTHROID [Concomitant]
     Route: 065
     Dates: start: 20091001
  4. CLONAZEPAM [Concomitant]
     Dosage: TWICE A DAY AS NEEDED
     Route: 065
     Dates: start: 20080601

REACTIONS (3)
  - DEEP VEIN THROMBOSIS [None]
  - OEDEMA PERIPHERAL [None]
  - PAIN IN EXTREMITY [None]
